FAERS Safety Report 11129989 (Version 1)
Quarter: 2015Q2

REPORT INFORMATION
  Report Type: Report from Study
  Country: IT (occurrence: IT)
  Receive Date: 20150521
  Receipt Date: 20150521
  Transmission Date: 20150821
  Serious: Yes (Death)
  Sender: FDA-Public Use
  Company Number: PHHY2015IT055554

PATIENT
  Age: 8 Year
  Sex: Male

DRUGS (1)
  1. AFINITOR [Suspect]
     Active Substance: EVEROLIMUS
     Indication: GLIOBLASTOMA MULTIFORME
     Dosage: 3 OT, QD (3 MG/MQ/DAY)
     Route: 065

REACTIONS (3)
  - Death [Fatal]
  - Aphthous stomatitis [Unknown]
  - Malignant neoplasm progression [Unknown]
